FAERS Safety Report 21688358 (Version 1)
Quarter: 2022Q4

REPORT INFORMATION
  Report Type: Spontaneous
  Country: US (occurrence: None)
  Receive Date: 20221205
  Receipt Date: 20221205
  Transmission Date: 20230112
  Serious: No
  Sender: FDA-Public Use
  Company Number: None

PATIENT
  Age: 50 Year
  Sex: Male
  Weight: 74.7 kg

DRUGS (1)
  1. INFLECTRA [Suspect]
     Active Substance: INFLIXIMAB-DYYB
     Indication: Sarcoidosis
     Dosage: OTHER FREQUENCY : EVERY 8 WEEKS;?
     Route: 041
     Dates: start: 20221014

REACTIONS (7)
  - Alopecia [None]
  - Hypoaesthesia [None]
  - Chest pain [None]
  - Ill-defined disorder [None]
  - Rectal haemorrhage [None]
  - Paraesthesia [None]
  - Paraesthesia [None]

NARRATIVE: CASE EVENT DATE: 20221205
